FAERS Safety Report 20557309 (Version 4)
Quarter: 2022Q2

REPORT INFORMATION
  Report Type: Spontaneous
  Country: AR (occurrence: AR)
  Receive Date: 20220307
  Receipt Date: 20220606
  Transmission Date: 20220721
  Serious: No
  Sender: FDA-Public Use
  Company Number: AR-PFIZER INC-202200219487

PATIENT
  Age: 6 Year
  Sex: Female

DRUGS (1)
  1. GENOTROPIN [Suspect]
     Active Substance: SOMATROPIN
     Indication: Foetal growth restriction
     Dosage: 0.6 TO 1 MG, 7 TIMES A WEEK
     Dates: start: 20210426

REACTIONS (3)
  - Incorrect dose administered by device [Not Recovered/Not Resolved]
  - Device mechanical issue [Unknown]
  - Device leakage [Unknown]
